FAERS Safety Report 23693028 (Version 1)
Quarter: 2024Q1

REPORT INFORMATION
  Report Type: Spontaneous
  Country: US (occurrence: None)
  Receive Date: 20240330
  Receipt Date: 20240330
  Transmission Date: 20240410
  Serious: Yes (Hospitalization, Disabling)
  Sender: FDA-Public Use
  Company Number: None

PATIENT
  Age: 72 Year
  Sex: Female
  Weight: 66.6 kg

DRUGS (6)
  1. MYCOPHENOLATE MOFETIL [Suspect]
     Active Substance: MYCOPHENOLATE MOFETIL
     Indication: Autoimmune hepatitis
     Dosage: 1 TABLET TWICE A DAY ORAL
     Route: 048
     Dates: start: 20230217
  2. multi-vitamin [Concomitant]
  3. B-12 [Concomitant]
  4. HERBALS\TURMERIC [Concomitant]
     Active Substance: HERBALS\TURMERIC
  5. FISH OIL [Concomitant]
  6. ATORVASTATIN [Suspect]
     Active Substance: ATORVASTATIN

REACTIONS (5)
  - Electrocardiogram abnormal [None]
  - Bradycardia [None]
  - Supraventricular tachycardia [None]
  - Hepatic failure [None]
  - Autoimmune hepatitis [None]

NARRATIVE: CASE EVENT DATE: 20240301
